FAERS Safety Report 9381469 (Version 1)
Quarter: 2013Q3

REPORT INFORMATION
  Report Type: Spontaneous
  Country: US (occurrence: US)
  Receive Date: 20130703
  Receipt Date: 20130703
  Transmission Date: 20140515
  Serious: No
  Sender: FDA-Public Use
  Company Number: US-ASTRAZENECA-2013SE48425

PATIENT
  Sex: Male

DRUGS (2)
  1. NEXIUM [Suspect]
     Dosage: 20 MG, USA
     Route: 048
  2. NEXIUM [Suspect]
     Dosage: 20 MG, INDIA
     Route: 048

REACTIONS (2)
  - Dyspepsia [Unknown]
  - Condition aggravated [Unknown]
